FAERS Safety Report 16219522 (Version 2)
Quarter: 2019Q2

REPORT INFORMATION
  Report Type: Report from Study
  Country: None (occurrence: US)
  Receive Date: 20190420
  Receipt Date: 20190616
  Transmission Date: 20190711
  Serious: Yes (Hospitalization, Other)
  Sender: FDA-Public Use
  Company Number: US-ABBVIE-19K-163-2746611-00

PATIENT
  Sex: Male
  Weight: 81.72 kg

DRUGS (3)
  1. PREDNISONE. [Concomitant]
     Active Substance: PREDNISONE
     Indication: PRODUCT USED FOR UNKNOWN INDICATION
  2. HUMIRA [Suspect]
     Active Substance: ADALIMUMAB
     Route: 058
     Dates: start: 201903, end: 201903
  3. HUMIRA [Suspect]
     Active Substance: ADALIMUMAB
     Indication: PSORIATIC ARTHROPATHY
     Route: 058
     Dates: start: 201810, end: 201811

REACTIONS (12)
  - Joint swelling [Unknown]
  - Musculoskeletal pain [Unknown]
  - Swelling [Unknown]
  - Joint stiffness [Unknown]
  - Drug ineffective [Recovered/Resolved]
  - Spinal fusion acquired [Recovering/Resolving]
  - Musculoskeletal stiffness [Unknown]
  - Peripheral swelling [Unknown]
  - Pain in extremity [Unknown]
  - Hypoaesthesia [Unknown]
  - Psoriatic arthropathy [Not Recovered/Not Resolved]
  - Arthralgia [Unknown]

NARRATIVE: CASE EVENT DATE: 2018
